FAERS Safety Report 12374851 (Version 1)
Quarter: 2016Q2

REPORT INFORMATION
  Report Type: Spontaneous
  Country: US (occurrence: US)
  Receive Date: 20160517
  Receipt Date: 20160517
  Transmission Date: 20160815
  Serious: Yes (Other)
  Sender: FDA-Public Use
  Company Number: US-009507513-1604USA015662

PATIENT
  Sex: Female

DRUGS (1)
  1. NEXPLANON [Suspect]
     Active Substance: ETONOGESTREL
     Indication: CONTRACEPTION
     Dosage: UNK
     Route: 059
     Dates: start: 2014, end: 2016

REACTIONS (9)
  - Device difficult to use [Unknown]
  - Blindness [Unknown]
  - Headache [Unknown]
  - Alopecia [Recovered/Resolved]
  - Personality change [Unknown]
  - Hypoaesthesia [Unknown]
  - Anxiety [Unknown]
  - Depression [Unknown]
  - Complication associated with device [Unknown]

NARRATIVE: CASE EVENT DATE: 2014
